FAERS Safety Report 8092083-5 (Version None)
Quarter: 2012Q1

REPORT INFORMATION
  Report Type: 
  Country: None (occurrence: None)
  Receive Date: 20120129
  Receipt Date: 20111109
  Transmission Date: 20120608
  Serious: No
  Sender: FDA-Public Use
  Company Number: US-ABBOTT-11P-163-0872944-00

PATIENT
  Sex: Female
  Weight: 54.026 kg

DRUGS (3)
  1. LEVOXYL [Concomitant]
     Indication: HYPOTHYROIDISM
  2. CRESTOR [Concomitant]
     Indication: BLOOD CHOLESTEROL INCREASED
  3. HUMIRA [Suspect]
     Indication: RHEUMATOID ARTHRITIS
     Route: 058
     Dates: start: 20060101

REACTIONS (2)
  - RHEUMATOID ARTHRITIS [None]
  - JOINT SWELLING [None]
